FAERS Safety Report 8445163-6 (Version None)
Quarter: 2012Q2

REPORT INFORMATION
  Report Type: 
  Country: None (occurrence: None)
  Receive Date: 20120612
  Receipt Date: 20120612
  Transmission Date: 20120825
  Serious: Yes (Other)
  Sender: FDA-Public Use
  Company Number: None

PATIENT
  Age: 46 Year
  Sex: Female

DRUGS (2)
  1. VIKADEN [Concomitant]
  2. BACLOFEN [Suspect]
     Indication: SPINAL COLUMN INJURY
     Dosage: 5MG 3 TIMES A DAY
     Dates: start: 20120608, end: 20120611

REACTIONS (2)
  - HYPERSENSITIVITY [None]
  - HEADACHE [None]
